FAERS Safety Report 4358829-4 (Version None)
Quarter: 2004Q2

REPORT INFORMATION
  Report Type: 
  Country: None (occurrence: None)
  Receive Date: 20040511
  Receipt Date: 20040430
  Transmission Date: 20050107
  Serious: No
  Sender: FDA-Public Use
  Company Number: 2004UW08948

PATIENT
  Age: 7 Year
  Sex: Male
  Weight: 33.5662 kg

DRUGS (4)
  1. SEROQUEL [Suspect]
     Indication: BIPOLAR DISORDER
     Dosage: 100 MG PO
     Route: 048
  2. LITHIUM CARBONATE [Concomitant]
  3. TEGRETOL [Concomitant]
  4. GABITRIL [Concomitant]

REACTIONS (3)
  - BIPOLAR DISORDER [None]
  - BLOOD GLUCOSE FLUCTUATION [None]
  - CONDITION AGGRAVATED [None]
